FAERS Safety Report 7831517-5 (Version None)
Quarter: 2011Q4

REPORT INFORMATION
  Report Type: 
  Country: None (occurrence: None)
  Receive Date: 20111021
  Receipt Date: 20110922
  Transmission Date: 20120403
  Serious: Yes (Other)
  Sender: FDA-Public Use
  Company Number: PHHY2011BR84961

PATIENT
  Age: 86 Year
  Sex: Male

DRUGS (9)
  1. DIGOXIN [Suspect]
     Dosage: 0.125 MG, UNK
  2. ATORVASTATIN [Suspect]
     Dosage: 10 MG, UNK
  3. CARVEDILOL [Suspect]
     Dosage: 50 MG, UNK
  4. SPIRONOLACTONE [Suspect]
     Dosage: 25 MG, UNK
  5. DIOVAN [Suspect]
     Dosage: 80 MG, UNK
  6. HYDROCHLOROTHIAZIDE [Suspect]
     Dosage: 12.5 MG, UNK
  7. GLIMEPIRIDE [Suspect]
     Dosage: 3 MG, UNK
  8. METFORMIN HCL [Suspect]
     Dosage: 1 G, UNK
  9. ASPIRIN [Suspect]

REACTIONS (4)
  - CREATININE RENAL CLEARANCE DECREASED [None]
  - GLYCOSYLATED HAEMOGLOBIN INCREASED [None]
  - BRAIN NATRIURETIC PEPTIDE INCREASED [None]
  - BLOOD GLUCOSE INCREASED [None]
